FAERS Safety Report 4818226-1 (Version None)
Quarter: 2005Q3

REPORT INFORMATION
  Report Type: 
  Country: None (occurrence: None)
  Receive Date: 20050929
  Receipt Date: 20050711
  Transmission Date: 20060218
  Serious: No
  Sender: FDA-Public Use
  Company Number: 05P-163-0305448-00

PATIENT
  Age: 68 Year
  Sex: Female
  Weight: 78.4723 kg

DRUGS (6)
  1. HUMIRA [Suspect]
     Indication: RHEUMATOID ARTHRITIS
     Dosage: 40 MG, 1 IN 2 WK, SUBCUTANEOUS; SEE IMAGE
     Route: 058
     Dates: start: 20040701, end: 20041101
  2. HUMIRA [Suspect]
     Indication: RHEUMATOID ARTHRITIS
     Dosage: 40 MG, 1 IN 2 WK, SUBCUTANEOUS; SEE IMAGE
     Route: 058
     Dates: start: 20050501
  3. PREDNISONE [Concomitant]
  4. CELECOXIB [Concomitant]
  5. ALPRAZOLAM [Concomitant]
  6. VICODIN [Concomitant]

REACTIONS (6)
  - BALANCE DISORDER [None]
  - FAECES DISCOLOURED [None]
  - FATIGUE [None]
  - PRODUCTIVE COUGH [None]
  - PYREXIA [None]
  - RASH [None]
